FAERS Safety Report 9106334 (Version 1)
Quarter: 2013Q1

REPORT INFORMATION
  Report Type: Spontaneous
  Country: FR (occurrence: FR)
  Receive Date: 20130220
  Receipt Date: 20130220
  Transmission Date: 20140127
  Serious: Yes (Other)
  Sender: FDA-Public Use
  Company Number: FR-ELI_LILLY_AND_COMPANY-FR201302002530

PATIENT
  Sex: Female

DRUGS (4)
  1. ADCIRCA [Suspect]
     Dosage: 40 MG, QD
     Route: 048
     Dates: start: 201205, end: 20121209
  2. ADCIRCA [Suspect]
     Dosage: UNK
     Dates: start: 20121210
  3. TRACLEER [Concomitant]
     Indication: PULMONARY ARTERIAL HYPERTENSION
     Dosage: 90 MG, TID
     Route: 048
  4. FLOLAN [Concomitant]
     Dosage: 72 MG, QD
     Route: 042

REACTIONS (3)
  - Oedema peripheral [Unknown]
  - Skin plaque [Unknown]
  - Off label use [Unknown]
